FAERS Safety Report 7892577-9 (Version None)
Quarter: 2011Q4

REPORT INFORMATION
  Report Type: 
  Country: None (occurrence: None)
  Receive Date: 20111102
  Receipt Date: 20111019
  Transmission Date: 20120403
  Serious: Yes (Hospitalization)
  Sender: FDA-Public Use
  Company Number: 2011-3591

PATIENT
  Age: 64 Year
  Sex: Male
  Weight: 76 kg

DRUGS (13)
  1. PRAXILENE (NAFTIDROFURYL OXALATE) [Concomitant]
  2. PLAVIX [Concomitant]
  3. ATORVASTATIN CALCIUM [Concomitant]
  4. PAROXETINE HYDROCHLORIDE [Suspect]
     Indication: PRODUCT USED FOR UNKNOWN INDICATION
     Dosage: (, 1 IN 1 D)
  5. ALLOPURINOL [Concomitant]
  6. EUPRESSYL (URAPIDIL) [Concomitant]
  7. NICARDIPINE HYDROCHLORIDE [Concomitant]
  8. DYSPORT [Suspect]
     Indication: MUSCLE SPASTICITY
     Dosage: 1300 UNITS (1300 UNITS,SINGLE CYCLE),INTRAMUSCULAR
     Route: 030
     Dates: start: 20110628, end: 20110628
  9. GLUCOPHAGE [Concomitant]
  10. LANTUS [Concomitant]
  11. REPAGLINIDE [Concomitant]
  12. HYTACAND (BLOPRESS PLUS) [Concomitant]
  13. PERINDOPRIL ERBUMINE [Concomitant]

REACTIONS (8)
  - CONDITION AGGRAVATED [None]
  - FALL [None]
  - LOSS OF CONSCIOUSNESS [None]
  - CATAPLEXY [None]
  - THERAPEUTIC RESPONSE DECREASED [None]
  - MUSCULAR WEAKNESS [None]
  - DYSPHAGIA [None]
  - MALAISE [None]
